FAERS Safety Report 7887998-4 (Version None)
Quarter: 2011Q4

REPORT INFORMATION
  Report Type: 
  Country: None (occurrence: None)
  Receive Date: 20111103
  Receipt Date: 20111028
  Transmission Date: 20120403
  Serious: Yes (Other)
  Sender: FDA-Public Use
  Company Number: US-SANOFI-AVENTIS-2011SA071047

PATIENT
  Age: 50 Year
  Sex: Female

DRUGS (4)
  1. OPTICLICK [Suspect]
  2. OPTICLICK [Suspect]
  3. LANTUS [Suspect]
     Dosage: DOSE:38 UNIT(S)
     Route: 058
  4. ADVAIR DISKUS 100/50 [Concomitant]

REACTIONS (1)
  - ATRIAL FIBRILLATION [None]
